FAERS Safety Report 22005475 (Version 1)
Quarter: 2023Q1

REPORT INFORMATION
  Report Type: Spontaneous
  Country: US (occurrence: None)
  Receive Date: 20230215
  Receipt Date: 20230215
  Transmission Date: 20230417
  Serious: No
  Sender: FDA-Public Use
  Company Number: None

PATIENT
  Sex: Female

DRUGS (1)
  1. SKYRIZI [Suspect]
     Active Substance: RISANKIZUMAB-RZAA
     Indication: Psoriasis
     Dosage: 150MG EVERY 12 WEEKS SUBCUTANEOUS?
     Route: 058
     Dates: start: 20221028

REACTIONS (8)
  - Condition aggravated [None]
  - Skin disorder [None]
  - Rash macular [None]
  - Pruritus [None]
  - Skin burning sensation [None]
  - Drug ineffective [None]
  - COVID-19 [None]
  - Stress [None]
